FAERS Safety Report 4312527-1 (Version None)
Quarter: 2004Q1

REPORT INFORMATION
  Report Type: 
  Country: None (occurrence: None)
  Receive Date: 20040305
  Receipt Date: 20040115
  Transmission Date: 20041129
  Serious: Yes (Hospitalization, Disabling)
  Sender: FDA-Public Use
  Company Number: PHBS2004JP00949

PATIENT
  Age: 48 Year
  Sex: Male

DRUGS (5)
  1. TEGRETOL [Suspect]
     Indication: CONVULSION
     Dosage: 200 MG, BID
     Route: 048
     Dates: start: 20031227, end: 20031231
  2. ALEVIATIN [Concomitant]
     Indication: STATUS EPILEPTICUS
     Dosage: 200 MG, BID
     Route: 048
     Dates: start: 20031220, end: 20040101
  3. GRAMALIL [Suspect]
     Indication: INSOMNIA
     Dosage: 50 MG/DAY
     Route: 048
     Dates: start: 20031225, end: 20040101
  4. GASTER D [Suspect]
     Indication: GASTRIC ULCER
     Dosage: 40 MG/DAY
     Route: 048
     Dates: end: 20040101
  5. LEDERMYCIN [Suspect]
     Indication: ACUTE RESPIRATORY DISTRESS SYNDROME
     Dosage: 150 MG, QID
     Route: 048
     Dates: start: 20031225, end: 20031231

REACTIONS (12)
  - ACUTE RESPIRATORY DISTRESS SYNDROME [None]
  - INSOMNIA [None]
  - LYMPHOCYTE STIMULATION TEST POSITIVE [None]
  - MUCOSAL EROSION [None]
  - OLIGURIA [None]
  - RASH [None]
  - SEPTIC SHOCK [None]
  - SKIN HYPERPIGMENTATION [None]
  - STAPHYLOCOCCAL INFECTION [None]
  - STATUS EPILEPTICUS [None]
  - STEVENS-JOHNSON SYNDROME [None]
  - TACHYCARDIA [None]
